FAERS Safety Report 23509926 (Version 3)
Quarter: 2024Q1

REPORT INFORMATION
  Report Type: Other
  Country: US (occurrence: US)
  Receive Date: 20240211
  Receipt Date: 20240313
  Transmission Date: 20240410
  Serious: No
  Sender: FDA-Public Use
  Company Number: US-TRAVERE-2024TVT00079

PATIENT
  Sex: Female

DRUGS (4)
  1. FILSPARI [Suspect]
     Active Substance: SPARSENTAN
     Indication: IgA nephropathy
     Route: 048
  2. FILSPARI [Suspect]
     Active Substance: SPARSENTAN
     Indication: Haematuria
     Route: 048
     Dates: start: 20240208, end: 202402
  3. BIOTIN [Concomitant]
     Active Substance: BIOTIN
  4. MIRENA [Concomitant]
     Active Substance: LEVONORGESTREL

REACTIONS (6)
  - Urticaria [Unknown]
  - Pruritus [Unknown]
  - COVID-19 [Unknown]
  - Abdominal pain upper [Unknown]
  - Illness [Unknown]
  - Dysstasia [Unknown]
